FAERS Safety Report 24748051 (Version 1)
Quarter: 2024Q4

REPORT INFORMATION
  Report Type: Spontaneous
  Country: RS (occurrence: RS)
  Receive Date: 20241218
  Receipt Date: 20241218
  Transmission Date: 20250115
  Serious: Yes (Other)
  Sender: GE HEALTHCARE
  Company Number: RS-GE HEALTHCARE-2024CSU014555

PATIENT
  Age: 66 Year
  Sex: Male

DRUGS (2)
  1. OMNIPAQUE [Suspect]
     Active Substance: IOHEXOL
     Indication: Computerised tomogram abdomen
     Dosage: 145 ML, TOTAL
     Route: 042
     Dates: start: 20241213, end: 20241213
  2. GLUFORMIN [Concomitant]
     Indication: Type 2 diabetes mellitus
     Route: 065

REACTIONS (3)
  - Sneezing [Recovered/Resolved]
  - Nasal congestion [Recovered/Resolved]
  - Urticaria [Recovered/Resolved]

NARRATIVE: CASE EVENT DATE: 20241213
